FAERS Safety Report 6506917-6 (Version None)
Quarter: 2009Q4

REPORT INFORMATION
  Report Type: 
  Country: None (occurrence: None)
  Receive Date: 20091127
  Receipt Date: 20090611
  Transmission Date: 20100525
  Serious: Yes (Hospitalization)
  Sender: FDA-Public Use
  Company Number: US200708000992

PATIENT
  Age: 83 Year
  Sex: Female
  Weight: 83.9 kg

DRUGS (12)
  1. BYETTA [Suspect]
     Indication: TYPE 2 DIABETES MELLITUS
     Dosage: 5SEE IMAGE
     Route: 058
     Dates: start: 20070717, end: 20070701
  2. BYETTA [Suspect]
     Indication: TYPE 2 DIABETES MELLITUS
     Dosage: 5SEE IMAGE
     Route: 058
     Dates: start: 20070723, end: 20070701
  3. BYETTA [Suspect]
     Indication: TYPE 2 DIABETES MELLITUS
     Dosage: 5SEE IMAGE
     Route: 058
     Dates: start: 20070705, end: 20070711
  4. BYETTA [Suspect]
     Indication: TYPE 2 DIABETES MELLITUS
     Dosage: 5SEE IMAGE
     Route: 058
     Dates: start: 20070712, end: 20070717
  5. BYETTA [Suspect]
     Indication: TYPE 2 DIABETES MELLITUS
     Dosage: 5SEE IMAGE
     Route: 058
     Dates: start: 20070724, end: 20070726
  6. BYETTA [Suspect]
     Indication: TYPE 2 DIABETES MELLITUS
     Dosage: 5SEE IMAGE
     Route: 058
     Dates: end: 20070801
  7. STARLIX [Concomitant]
  8. GLIPIZIDE [Concomitant]
  9. AVANDIA [Concomitant]
  10. LISINOPRIL [Concomitant]
  11. METOPROLOL (METOPROLOL) [Concomitant]
  12. PREVACID [Concomitant]

REACTIONS (12)
  - ASTHENIA [None]
  - BLOOD GLUCOSE ABNORMAL [None]
  - BLOOD GLUCOSE DECREASED [None]
  - DEHYDRATION [None]
  - DIARRHOEA [None]
  - DYSGEUSIA [None]
  - EYE LASER SURGERY [None]
  - GASTROOESOPHAGEAL REFLUX DISEASE [None]
  - INAPPROPRIATE SCHEDULE OF DRUG ADMINISTRATION [None]
  - MALAISE [None]
  - NAUSEA [None]
  - PAIN [None]
